FAERS Safety Report 8979613 (Version 2)
Quarter: 2013Q1

REPORT INFORMATION
  Report Type: Spontaneous
  Country: BR (occurrence: BR)
  Receive Date: 20121221
  Receipt Date: 20130304
  Transmission Date: 20140127
  Serious: Yes (Other)
  Sender: FDA-Public Use
  Company Number: PHHY2012BR118255

PATIENT
  Sex: Male

DRUGS (3)
  1. DIOVAN AMLO FIX [Suspect]
     Indication: HYPERTENSION
     Dosage: 1 DF (80 MG VALS AND 5 MG AMLO) (ONE IN MORNING)
     Route: 048
  2. DIOVAN AMLO FIX [Suspect]
     Dosage: 1 DF (160 MG VALS AND 5 MG AMLO) (1 IN MORNING)
     Route: 048
  3. SELOKEN [Concomitant]
     Indication: HEART RATE ABNORMAL
     Dosage: 100 MG, DAILY
     Route: 048

REACTIONS (3)
  - Road traffic accident [Unknown]
  - Lower limb fracture [Unknown]
  - Blood pressure inadequately controlled [Recovered/Resolved]
